FAERS Safety Report 8231516-8 (Version None)
Quarter: 2012Q1

REPORT INFORMATION
  Report Type: 
  Country: None (occurrence: None)
  Receive Date: 20120323
  Receipt Date: 20120316
  Transmission Date: 20120608
  Serious: Yes (Hospitalization)
  Sender: FDA-Public Use
  Company Number: PHHY2011JP06864

PATIENT
  Sex: Female

DRUGS (8)
  1. MICARDIS [Concomitant]
     Indication: HYPERTENSION
     Dosage: 40 MG, UNK
     Route: 048
     Dates: start: 20110114, end: 20110208
  2. CELECOXIB [Concomitant]
     Dosage: 200 MG, UNK
  3. BUFFERIN [Concomitant]
     Dosage: 81 MG, UNK
     Route: 048
  4. CADUET [Concomitant]
     Indication: HYPERTENSION
     Dosage: 1 DF, QD
     Route: 048
     Dates: start: 20110104, end: 20110208
  5. SIGMART [Concomitant]
     Dosage: 5 MG, UNK
     Route: 048
  6. ALFAROL [Concomitant]
     Dosage: 1 UG, UNK
     Route: 048
     Dates: start: 20101221
  7. RASILEZ [Suspect]
     Indication: HYPERTENSION
     Dosage: 150 MG, DAILY
     Route: 048
     Dates: start: 20110104, end: 20110127
  8. ALLOPURINOL [Concomitant]
     Route: 048

REACTIONS (4)
  - BLOOD POTASSIUM INCREASED [None]
  - RENAL FAILURE ACUTE [None]
  - BLOOD UREA INCREASED [None]
  - BLOOD CREATININE INCREASED [None]
